FAERS Safety Report 21532139 (Version 12)
Quarter: 2024Q1

REPORT INFORMATION
  Report Type: Spontaneous
  Country: US (occurrence: US)
  Receive Date: 20221101
  Receipt Date: 20240202
  Transmission Date: 20240410
  Serious: Yes (Other)
  Sender: FDA-Public Use
  Company Number: US-GLAXOSMITHKLINE-US2022AMR155596

PATIENT

DRUGS (4)
  1. ZEJULA [Suspect]
     Active Substance: NIRAPARIB
     Indication: Ovarian cancer
     Dosage: 200 MG, QD
     Dates: end: 20221107
  2. ZEJULA [Suspect]
     Active Substance: NIRAPARIB
     Dosage: 200 MG, QD (ONCE A DAY AT BEDTIME)
  3. ZEJULA [Suspect]
     Active Substance: NIRAPARIB
     Indication: Ovarian cancer
     Dosage: 200 MG, QD AT HS (BED TIME)
  4. ZEJULA [Suspect]
     Active Substance: NIRAPARIB
     Dosage: 200 MG, BID

REACTIONS (22)
  - Recurrent cancer [Unknown]
  - Fatigue [Not Recovered/Not Resolved]
  - Decreased appetite [Unknown]
  - Sleep disorder [Not Recovered/Not Resolved]
  - Insomnia [Not Recovered/Not Resolved]
  - Platelet count decreased [Not Recovered/Not Resolved]
  - Headache [Not Recovered/Not Resolved]
  - Thirst [Unknown]
  - Hot flush [Unknown]
  - Pain [Unknown]
  - Back pain [Unknown]
  - Memory impairment [Unknown]
  - Condition aggravated [Recovering/Resolving]
  - Paraesthesia [Recovering/Resolving]
  - Epistaxis [Unknown]
  - Seasonal allergy [Recovering/Resolving]
  - Blood urine present [Unknown]
  - Rhinorrhoea [Unknown]
  - Renal mass [Unknown]
  - Lymphadenopathy [Unknown]
  - Neoplasm [Unknown]
  - Product dose omission issue [Unknown]
